FAERS Safety Report 18469457 (Version 45)
Quarter: 2025Q4

REPORT INFORMATION
  Report Type: Report from Study
  Country: BR (occurrence: BR)
  Receive Date: 20201105
  Receipt Date: 20251104
  Transmission Date: 20260117
  Serious: Yes (Hospitalization, Other)
  Sender: TAKEDA
  Company Number: BR-SHIRE-BR202033071

PATIENT
  Age: 57 Year
  Sex: Female
  Weight: 61 kg

DRUGS (36)
  1. TEDUGLUTIDE [Suspect]
     Active Substance: TEDUGLUTIDE
     Indication: Short-bowel syndrome
     Dosage: 3.6 MILLILITER, QD
     Dates: start: 20070217
  2. TEDUGLUTIDE [Suspect]
     Active Substance: TEDUGLUTIDE
     Indication: Functional gastrointestinal disorder
     Dosage: 0.36 MILLILITER, QD
     Dates: start: 20181224
  3. TEDUGLUTIDE [Suspect]
     Active Substance: TEDUGLUTIDE
     Dosage: 0.3 MILLILITER
  4. TEDUGLUTIDE [Suspect]
     Active Substance: TEDUGLUTIDE
     Dosage: 0.36 MILLILITER, QD
     Dates: start: 20200919
  5. TEDUGLUTIDE [Suspect]
     Active Substance: TEDUGLUTIDE
     Dosage: 0.36 MILLILITER, QD
     Dates: start: 20210331
  6. TEDUGLUTIDE [Suspect]
     Active Substance: TEDUGLUTIDE
     Dosage: UNK UNK , QD
     Dates: start: 20211224
  7. TEDUGLUTIDE [Suspect]
     Active Substance: TEDUGLUTIDE
     Dosage: 3.3 MILLIGRAM, QD
  8. TEDUGLUTIDE [Suspect]
     Active Substance: TEDUGLUTIDE
     Dosage: 5 MILLIGRAM
  9. TEDUGLUTIDE [Suspect]
     Active Substance: TEDUGLUTIDE
     Dosage: 3.4 MILLIGRAM, QD
  10. TEDUGLUTIDE [Suspect]
     Active Substance: TEDUGLUTIDE
     Dosage: 3.4 MILLIGRAM
  11. TEDUGLUTIDE [Suspect]
     Active Substance: TEDUGLUTIDE
     Dosage: 3.6 MILLILITER, QD
  12. TEDUGLUTIDE [Suspect]
     Active Substance: TEDUGLUTIDE
     Dosage: UNK UNK, QD
  13. TEDUGLUTIDE [Suspect]
     Active Substance: TEDUGLUTIDE
     Dosage: 3 MILLIGRAM, QD
  14. TEDUGLUTIDE [Suspect]
     Active Substance: TEDUGLUTIDE
     Dosage: UNK
  15. TEDUGLUTIDE [Suspect]
     Active Substance: TEDUGLUTIDE
     Dosage: 3 MILLIGRAM, QD
  16. TEDUGLUTIDE [Suspect]
     Active Substance: TEDUGLUTIDE
     Dosage: UNK UNK, QD
  17. COVID-19 VACCINE NOS [Suspect]
     Active Substance: COVID-19 VACCINE
     Indication: COVID-19 immunisation
     Dosage: UNK
  18. ONDANSETRON [Concomitant]
     Active Substance: ONDANSETRON
     Indication: Nausea
     Dosage: 8 MILLIGRAM, TID
     Dates: start: 2010
  19. ONDANSETRON [Concomitant]
     Active Substance: ONDANSETRON
     Indication: Vomiting
  20. ESIO [Concomitant]
     Indication: Gastrointestinal disorder
     Dosage: 20 MILLIGRAM, QD
     Dates: start: 2008
  21. ESCITALOPRAM [Concomitant]
     Active Substance: ESCITALOPRAM OXALATE
     Dosage: 10 MILLIGRAM, QD
     Dates: start: 2009
  22. WARFARIN SODIUM [Concomitant]
     Active Substance: WARFARIN SODIUM
     Indication: Anticoagulant therapy
     Dosage: 5 MILLIGRAM, QD
     Dates: start: 2007
  23. WARFARIN SODIUM [Concomitant]
     Active Substance: WARFARIN SODIUM
     Dosage: UNK
  24. ENOXAPARIN SODIUM [Concomitant]
     Active Substance: ENOXAPARIN SODIUM
     Indication: Anticoagulant therapy
     Dosage: UNK UNK, BID
     Dates: start: 202102
  25. ASPIRIN [Concomitant]
     Active Substance: ASPIRIN
     Indication: Anticoagulant therapy
     Dosage: UNK
  26. LORAZEPAM [Concomitant]
     Active Substance: LORAZEPAM
     Indication: Sleep disorder
     Dosage: 2 MILLIGRAM, QD
     Dates: start: 2008
  27. OSCAL D [Concomitant]
     Active Substance: CALCIUM CARBONATE\CHOLECALCIFEROL
     Indication: Calcium deficiency
     Dosage: 500 MILLIGRAM, QD
     Dates: start: 2017
  28. IVERMECTIN [Concomitant]
     Active Substance: IVERMECTIN
     Indication: COVID-19
     Dosage: UNK
  29. BISOLVON [Concomitant]
     Active Substance: BROMHEXINE HYDROCHLORIDE
     Indication: COVID-19
     Dosage: UNK
  30. Vitamin c plus [Concomitant]
     Indication: COVID-19
     Dosage: UNK
  31. VITAMINS [Concomitant]
     Active Substance: VITAMINS
     Indication: Vitamin supplementation
     Dosage: UNK
  32. LEXAPRO [Concomitant]
     Active Substance: ESCITALOPRAM OXALATE
     Dosage: 10 MILLIGRAM, QD
  33. OMEPRAZOLE [Concomitant]
     Active Substance: OMEPRAZOLE
     Dosage: 20 MILLIGRAM, QD
  34. ZOFRAN [Concomitant]
     Active Substance: ONDANSETRON HYDROCHLORIDE
     Dosage: UNK
  35. Aderan [Concomitant]
     Dosage: 5000 INTERNATIONAL UNIT, QD
  36. VITAMIN C [Concomitant]
     Active Substance: ASCORBIC ACID
     Dosage: UNK

REACTIONS (126)
  - Gait disturbance [Recovered/Resolved]
  - Pyrexia [Recovered/Resolved]
  - Illness [Recovering/Resolving]
  - Diarrhoea [Recovered/Resolved]
  - International normalised ratio fluctuation [Unknown]
  - Fall [Not Recovered/Not Resolved]
  - Endocarditis [Unknown]
  - Poor venous access [Recovered/Resolved]
  - Vascular injury [Not Recovered/Not Resolved]
  - Application site mass [Not Recovered/Not Resolved]
  - Procedural haemorrhage [Not Recovered/Not Resolved]
  - Functional gastrointestinal disorder [Not Recovered/Not Resolved]
  - Thrombosis [Not Recovered/Not Resolved]
  - Erysipelas [Recovered/Resolved]
  - General physical health deterioration [Unknown]
  - Electrolyte imbalance [Recovering/Resolving]
  - Hypoaesthesia [Unknown]
  - Fungal infection [Unknown]
  - Retching [Unknown]
  - Bacterial infection [Unknown]
  - Malaise [Unknown]
  - Head injury [Not Recovered/Not Resolved]
  - Paraesthesia [Unknown]
  - Blood electrolytes decreased [Unknown]
  - Memory impairment [Recovered/Resolved]
  - Venous injury [Unknown]
  - Speech disorder [Recovering/Resolving]
  - Ligament sprain [Recovering/Resolving]
  - Musculoskeletal stiffness [Recovering/Resolving]
  - Asthenia [Recovering/Resolving]
  - COVID-19 [Not Recovered/Not Resolved]
  - Vascular device infection [Recovered/Resolved]
  - Urinary tract infection [Recovering/Resolving]
  - Upper limb fracture [Not Recovered/Not Resolved]
  - Bacterial diarrhoea [Recovering/Resolving]
  - Vomiting [Recovered/Resolved]
  - Carcinoembryonic antigen increased [Unknown]
  - Infection [Unknown]
  - Application site haematoma [Unknown]
  - Application site bruise [Unknown]
  - Stomatitis [Recovered/Resolved]
  - Restlessness [Recovered/Resolved]
  - Pain in extremity [Recovered/Resolved]
  - Wrong technique in product usage process [Not Recovered/Not Resolved]
  - Pruritus [Recovered/Resolved]
  - Oedema peripheral [Not Recovered/Not Resolved]
  - Bedridden [Unknown]
  - Vitamin D deficiency [Not Recovered/Not Resolved]
  - Calcium deficiency [Not Recovered/Not Resolved]
  - Diarrhoea [Recovered/Resolved]
  - Infusion site induration [Unknown]
  - Hypoglycaemia [Not Recovered/Not Resolved]
  - Visual impairment [Unknown]
  - Blister [Recovered/Resolved]
  - Herpes zoster [Recovered/Resolved]
  - Injection site discolouration [Unknown]
  - Skin discolouration [Unknown]
  - Body height decreased [Unknown]
  - Weight fluctuation [Not Recovered/Not Resolved]
  - Weight decreased [Unknown]
  - Weight increased [Recovered/Resolved]
  - Feeling hot [Not Recovered/Not Resolved]
  - Carbohydrate antigen 19-9 increased [Recovering/Resolving]
  - Onychoclasis [Unknown]
  - Blood glucose decreased [Unknown]
  - Blood calcium decreased [Unknown]
  - Blood magnesium decreased [Unknown]
  - Aphasia [Unknown]
  - Oral disorder [Unknown]
  - Gastric neoplasm [Unknown]
  - Device issue [Unknown]
  - Peripheral swelling [Recovered/Resolved]
  - Crying [Unknown]
  - Fear of death [Unknown]
  - Gastrointestinal disorder [Unknown]
  - Feeling abnormal [Unknown]
  - Blood pressure decreased [Unknown]
  - Application site pain [Unknown]
  - Incorrect product administration duration [Unknown]
  - Inappropriate schedule of product administration [Unknown]
  - Wrong dose [Unknown]
  - Product dose omission in error [Unknown]
  - Off label use [Unknown]
  - Malnutrition [Unknown]
  - Liver disorder [Unknown]
  - Product dose omission issue [Unknown]
  - Haematoma [Not Recovered/Not Resolved]
  - Rash macular [Unknown]
  - Injection site pain [Unknown]
  - Rhinitis [Unknown]
  - Insomnia [Not Recovered/Not Resolved]
  - Decreased appetite [Not Recovered/Not Resolved]
  - Muscle spasms [Recovering/Resolving]
  - Oropharyngeal pain [Recovered/Resolved]
  - Hyperhidrosis [Recovering/Resolving]
  - Gastrointestinal motility disorder [Recovering/Resolving]
  - Throat irritation [Not Recovered/Not Resolved]
  - Pain [Recovering/Resolving]
  - Alopecia [Unknown]
  - Gait inability [Unknown]
  - Swelling [Not Recovered/Not Resolved]
  - Nasal disorder [Unknown]
  - Pollakiuria [Unknown]
  - Fatigue [Not Recovered/Not Resolved]
  - Chest discomfort [Not Recovered/Not Resolved]
  - Pain in jaw [Not Recovered/Not Resolved]
  - Mouth swelling [Not Recovered/Not Resolved]
  - Alanine aminotransferase increased [Not Recovered/Not Resolved]
  - Aspartate aminotransferase increased [Not Recovered/Not Resolved]
  - Tremor [Recovered/Resolved]
  - Dizziness [Not Recovered/Not Resolved]
  - Feeling cold [Unknown]
  - Device occlusion [Unknown]
  - Dysphonia [Not Recovered/Not Resolved]
  - Hypophagia [Recovering/Resolving]
  - Chromaturia [Unknown]
  - Head discomfort [Unknown]
  - Skin exfoliation [Recovered/Resolved]
  - Product availability issue [Recovered/Resolved]
  - Decreased appetite [Not Recovered/Not Resolved]
  - Dyspnoea [Not Recovered/Not Resolved]
  - Cough [Recovering/Resolving]
  - Nausea [Recovered/Resolved]
  - Headache [Recovered/Resolved]
  - Injection site erythema [Recovering/Resolving]
  - Sinusitis [Not Recovered/Not Resolved]

NARRATIVE: CASE EVENT DATE: 20200201
